FAERS Safety Report 5714096-8 (Version None)
Quarter: 2008Q2

REPORT INFORMATION
  Report Type: 
  Country: None (occurrence: None)
  Receive Date: 20080422
  Receipt Date: 20080422
  Transmission Date: 20081010
  Serious: Yes (Other)
  Sender: FDA-Public Use
  Company Number: None

PATIENT
  Age: 59 Year
  Sex: Female
  Weight: 70.3075 kg

DRUGS (1)
  1. CYMBALTA [Suspect]
     Indication: FIBROMYALGIA
     Dosage: ONE DAILY PO
     Route: 048
     Dates: start: 20080201, end: 20080301

REACTIONS (8)
  - ALOPECIA [None]
  - DYSPNOEA [None]
  - EATING DISORDER [None]
  - HAIR TEXTURE ABNORMAL [None]
  - LISTLESS [None]
  - MIDDLE INSOMNIA [None]
  - NIGHTMARE [None]
  - PALPITATIONS [None]
